FAERS Safety Report 22393969 (Version 8)
Quarter: 2024Q2

REPORT INFORMATION
  Report Type: Spontaneous
  Country: ES (occurrence: ES)
  Receive Date: 20230601
  Receipt Date: 20240521
  Transmission Date: 20240716
  Serious: Yes (Death, Other)
  Sender: FDA-Public Use
  Company Number: ES-BAXTER-2023BAX021834

PATIENT
  Age: 71 Year
  Sex: Female

DRUGS (34)
  1. CYTARABINE [Suspect]
     Active Substance: CYTARABINE
     Indication: Diffuse large B-cell lymphoma stage IV
     Dosage: TIME INTERVAL: CYCLICAL: UNK, CYCLIC, 5TH LINE AS A PART OF R-MTX-ARA-C REGIMEN?FORM OF ADMIN: POWDE
  2. CYTARABINE [Suspect]
     Active Substance: CYTARABINE
     Indication: Diffuse large B-cell lymphoma
     Dosage: TIME INTERVAL: CYCLICAL: UNK, CYCLIC, 5TH LINE AS A PART OF R-MTX-ARA-C REGIMEN?FORM OF ADMIN: POWDE
     Route: 065
  3. BENDAMUSTINE HYDROCHLORIDE [Suspect]
     Active Substance: BENDAMUSTINE HYDROCHLORIDE
     Indication: Diffuse large B-cell lymphoma
     Dosage: 3RD LINE, 1 CYCLE, BRIDGE THERAPY?FORM OF ADMIN: SOLUTION FOR INFUSION?ROA: UNKNOWN?FOA: SOLUTION FO
  4. BENDAMUSTINE HYDROCHLORIDE [Suspect]
     Active Substance: BENDAMUSTINE HYDROCHLORIDE
     Indication: Diffuse large B-cell lymphoma
     Dosage: TIME INTERVAL: CYCLICAL: UNK, CYCLIC (3RD LINE, 1 CYCLE, BRIDGE THERAPY), DOSAGE FORM: SOLUTION FOR
  5. BENDAMUSTINE HYDROCHLORIDE [Suspect]
     Active Substance: BENDAMUSTINE HYDROCHLORIDE
     Indication: Diffuse large B-cell lymphoma stage IV
     Dosage: TIME INTERVAL: CYCLICAL: UNK, CYCLIC (3RD LINE, 1 CYCLE, BRIDGE THERAPY), DOSAGE FORM: POWDER FOR...
  6. IMBRUVICA [Suspect]
     Active Substance: IBRUTINIB
     Indication: Diffuse large B-cell lymphoma stage IV
     Dosage: TIME INTERVAL: CYCLICAL: UNK, CYCLIC, 6TH LINE, 4 CYCLES?ROA: ORAL
  7. IMBRUVICA [Suspect]
     Active Substance: IBRUTINIB
     Indication: Diffuse large B-cell lymphoma
     Dosage: UNK, CYCLIC, 6TH LINE, 4 CYCLES?ROA: ORAL
  8. IMBRUVICA [Suspect]
     Active Substance: IBRUTINIB
     Dosage: UNK, CYCLIC, 6TH LINE, 4 CYCLES?ROA: ORAL
  9. GENOXAL [Suspect]
     Active Substance: CYCLOPHOSPHAMIDE
     Indication: Diffuse large B-cell lymphoma stage IV
     Dosage: 1ST LINE, 6 CYCLES AS A PART OF RCHOP REGIMEN?ROA: UNKNOWN
  10. GENOXAL [Suspect]
     Active Substance: CYCLOPHOSPHAMIDE
     Indication: Diffuse large B-cell lymphoma stage IV
     Dosage: 2ND LINE, 8 CYCLES AS A PART OF EC REGIMEN?ROA: UNKNOWN
  11. GENOXAL [Suspect]
     Active Substance: CYCLOPHOSPHAMIDE
     Indication: Diffuse large B-cell lymphoma
     Dosage: 2ND LINE, 8 CYCLES AS A PART OF EC REGIMEN?ROA: UNKNOWN
  12. GENOXAL [Suspect]
     Active Substance: CYCLOPHOSPHAMIDE
     Dosage: 1ST LINE, 6 CYCLES AS A PART OF RCHOP REGIMEN?ROA: UNKNOWN
  13. GENOXAL [Suspect]
     Active Substance: CYCLOPHOSPHAMIDE
     Dosage: 2ND LINE, 8 CYCLES AS A PART OF EC REGIMEN?ROA: UNKNOWN
  14. MOSUNETUZUMAB [Suspect]
     Active Substance: MOSUNETUZUMAB
     Indication: Diffuse large B-cell lymphoma
     Dosage: TIME INTERVAL: CYCLICAL: UNK, CYCLIC, 2ND LINE, 8 CYCLES?ROA: OTHER
  15. MOSUNETUZUMAB [Suspect]
     Active Substance: MOSUNETUZUMAB
     Indication: Diffuse large B-cell lymphoma stage IV
     Dosage: TIME INTERVAL: CYCLICAL: UNK, CYCLIC, 2ND LINE, 8 CYCLES?ROA: OTHER
  16. DOXORUBICIN HYDROCHLORIDE [Suspect]
     Active Substance: DOXORUBICIN HYDROCHLORIDE
     Indication: Diffuse large B-cell lymphoma stage IV
     Dosage: 1ST LINE, 6 CYCLES AS A PART OF RCHOP REGIMEN?FOA: UNKNOWN?ROA: UNKNOWN
  17. DOXORUBICIN HYDROCHLORIDE [Suspect]
     Active Substance: DOXORUBICIN HYDROCHLORIDE
     Dosage: 1ST LINE, 6 CYCLES AS A PART OF RCHOP REGIMEN?FOA: UNKNOWN?ROA: UNKNOWN
  18. PREDNISONE [Suspect]
     Active Substance: PREDNISONE
     Indication: Diffuse large B-cell lymphoma stage IV
     Dosage: UNK, UNKNOWN FREQ.(1ST LINE, 6 CYCLES AS A PART OF RCHOP REGIMEN)
     Route: 065
  19. PREDNISONE [Suspect]
     Active Substance: PREDNISONE
     Indication: Diffuse large B-cell lymphoma stage IV
     Dosage: UNK, UNKNOWN FREQ.(1ST LINE, 6 CYCLES AS A PART OF RCHOP REGIMEN)?FOA: SOLUTION?ROA: UNKNOWN
  20. PREDNISONE [Suspect]
     Active Substance: PREDNISONE
     Indication: Diffuse large B-cell lymphoma
  21. TRUXIMA [Suspect]
     Active Substance: RITUXIMAB-ABBS
     Indication: Diffuse large B-cell lymphoma stage IV
     Dosage: 1ST LINE, 6 CYCLES AS A PART OF RCHOP REGIMEN?ROA: UNKNOWN
  22. TRUXIMA [Suspect]
     Active Substance: RITUXIMAB-ABBS
     Indication: Diffuse large B-cell lymphoma stage IV
     Dosage: 3RD LINE, 1 CYCLE, BRIDGE THERAPY?ROA: UNKNOWN
  23. TRUXIMA [Suspect]
     Active Substance: RITUXIMAB-ABBS
     Indication: Diffuse large B-cell lymphoma stage IV
     Dosage: 5TH LINE AS A PART OF R-MTX-ARA-C REGIMEN?ROA: UNKNOWN
  24. TRUXIMA [Suspect]
     Active Substance: RITUXIMAB-ABBS
     Indication: Diffuse large B-cell lymphoma
  25. DEXAMETHASONE [Suspect]
     Active Substance: DEXAMETHASONE
     Indication: Diffuse large B-cell lymphoma stage IV
     Dosage: FOA-ORAL LIQUID?ROA: UNKNOWN
  26. DEXAMETHASONE [Suspect]
     Active Substance: DEXAMETHASONE
     Dosage: UNK, UNKNOWN FREQ?ORAL LIQUID?ROA: UNKNOWN
  27. EPIRUBICIN [Suspect]
     Active Substance: EPIRUBICIN
     Indication: Diffuse large B-cell lymphoma
     Dosage: UNK, CYCLIC, 2ND LINE, 8 CYCLES AS A PART OF EC REGIMEN?FOA-POWDER FOR INFUSION?ROA: OTHER
  28. EPIRUBICIN [Suspect]
     Active Substance: EPIRUBICIN
     Indication: Diffuse large B-cell lymphoma stage IV
     Dosage: UNK, CYCLIC, 2ND LINE, 8 CYCLES AS A PART OF EC REGIMEN?FOA-POWDER FOR INFUSION?ROA: OTHER
  29. VINCRISTINE [Suspect]
     Active Substance: VINCRISTINE
     Indication: Diffuse large B-cell lymphoma
     Dosage: 1ST LINE, 6 CYCLES AS A PART OF RCHOP REGIMEN?ROA: UNKNOWN
  30. METHOTREXATE SODIUM [Suspect]
     Active Substance: METHOTREXATE SODIUM
     Indication: Diffuse large B-cell lymphoma stage IV
     Dosage: TIME INTERVAL: CYCLICAL: UNK, CYCLIC, 5TH LINE AS A PART OF R-MTX-ARA-C REGIMEN?FOA: CAPSULE?ROA: UN
  31. VINCRISTINE SULFATE [Suspect]
     Active Substance: VINCRISTINE SULFATE
     Indication: Diffuse large B-cell lymphoma
     Dosage: UNK, UNKNOWN FREQ, 1ST LINE, 6 CYCLES AS A PART OF RCHOP REGIMEN?ROA: UNKNOWN
  32. VINCRISTINE SULFATE [Suspect]
     Active Substance: VINCRISTINE SULFATE
     Indication: Diffuse large B-cell lymphoma stage IV
  33. TEMODAL [Suspect]
     Active Substance: TEMOZOLOMIDE
     Indication: Diffuse large B-cell lymphoma
     Dosage: 6TH LINE, 4 CYCLES?FOA-CAPSULES?ROA: UNKNOWN
  34. TEMODAL [Suspect]
     Active Substance: TEMOZOLOMIDE
     Indication: Diffuse large B-cell lymphoma stage IV

REACTIONS (14)
  - Death [Fatal]
  - Diffuse large B-cell lymphoma [Recovered/Resolved]
  - Disease progression [Recovered/Resolved]
  - Vasogenic cerebral oedema [Recovered/Resolved]
  - Disease progression [Not Recovered/Not Resolved]
  - Malignant neoplasm progression [Recovered/Resolved]
  - Diffuse large B-cell lymphoma [Recovered/Resolved]
  - Malignant neoplasm progression [Recovered/Resolved]
  - Neurological symptom [Unknown]
  - Vasogenic cerebral oedema [Not Recovered/Not Resolved]
  - Diffuse large B-cell lymphoma recurrent [Unknown]
  - Disorientation [Unknown]
  - Therapy partial responder [Unknown]
  - Therapeutic product effect incomplete [Unknown]
